FAERS Safety Report 6135810-6 (Version None)
Quarter: 2009Q1

REPORT INFORMATION
  Report Type: 
  Country: None (occurrence: None)
  Receive Date: 20090327
  Receipt Date: 20090318
  Transmission Date: 20090719
  Serious: Yes (Other)
  Sender: FDA-Public Use
  Company Number: US-GENENTECH-279625

PATIENT

DRUGS (12)
  1. RITUXAN [Suspect]
     Indication: CHRONIC LYMPHOCYTIC LEUKAEMIA
     Dosage: 375 MG/M2, DAY 1/Q4W
     Route: 042
  2. RITUXAN [Suspect]
     Dosage: 500 MG/M2, DAY 14/Q4W
     Route: 042
  3. RITUXAN [Suspect]
     Dosage: 500 MG/M2, Q3M
  4. FLUDARABINE PHOSPHATE [Suspect]
     Indication: CHRONIC LYMPHOCYTIC LEUKAEMIA
     Dosage: 20 MG/M2, DAY 2,3,4/Q4W
     Route: 042
  5. CYCLOPHOSPHAMIDE [Suspect]
     Indication: CHRONIC LYMPHOCYTIC LEUKAEMIA
     Dosage: 150 MG/M2, DAY 2,3,4/Q4W
     Route: 042
  6. ALLOPURINOL [Suspect]
     Indication: CHRONIC LYMPHOCYTIC LEUKAEMIA
     Dosage: 300 MG, QD
     Route: 048
  7. SULFAMETHOXAZOLE AND TRIMETHOPRIM [Suspect]
     Indication: CHRONIC LYMPHOCYTIC LEUKAEMIA
     Dosage: UNK, BIDX3/WEEK
     Route: 048
  8. ACYCLOVIR [Suspect]
     Indication: CHRONIC LYMPHOCYTIC LEUKAEMIA
     Dosage: 400 MG, TID
     Route: 048
  9. FILGRASTIM [Suspect]
     Indication: CHRONIC LYMPHOCYTIC LEUKAEMIA
  10. DIPHENHYDRAMINE [Concomitant]
     Indication: PREMEDICATION
  11. DEXAMETHASONE [Concomitant]
     Indication: PREMEDICATION
  12. ACETAMINOPHEN [Concomitant]
     Indication: PREMEDICATION

REACTIONS (1)
  - FEBRILE NEUTROPENIA [None]
